FAERS Safety Report 15266186 (Version 2)
Quarter: 2018Q3

REPORT INFORMATION
  Report Type: Spontaneous
  Country: US (occurrence: US)
  Receive Date: 20180810
  Receipt Date: 20180823
  Transmission Date: 20181010
  Serious: Yes (Hospitalization, Other)
  Sender: FDA-Public Use
  Company Number: US-MYLANLABS-2018M1061120

PATIENT
  Age: 39 Year
  Sex: Male

DRUGS (6)
  1. LORAZEPAM. [Concomitant]
     Active Substance: LORAZEPAM
     Indication: PRODUCT USED FOR UNKNOWN INDICATION
     Dosage: UNK
  2. QUETIAPINE. [Suspect]
     Active Substance: QUETIAPINE
     Indication: BIPOLAR DISORDER
     Dosage: 700 MG, HS (BED TIME)
  3. QUETIAPINE. [Suspect]
     Active Substance: QUETIAPINE
     Dosage: 800 MG, HS (BED TIME)
     Route: 065
  4. QUETIAPINE. [Suspect]
     Active Substance: QUETIAPINE
     Dosage: 150 MG, UNK
     Route: 065
  5. VALPROIC ACID. [Interacting]
     Active Substance: VALPROIC ACID
     Indication: BIPOLAR DISORDER
     Dosage: 2500 MG, UNK
  6. VALPROIC ACID. [Interacting]
     Active Substance: VALPROIC ACID
     Dosage: 700?800 MG, DAILY
     Route: 065

REACTIONS (13)
  - Hyperosmolar state [Recovered/Resolved]
  - Diabetic ketoacidosis [Unknown]
  - Hyperlipidaemia [Recovered/Resolved]
  - Drug interaction [Unknown]
  - Hypercapnia [Unknown]
  - Hypoxia [Unknown]
  - Diabetes mellitus [Unknown]
  - Weight increased [Unknown]
  - Coma [Unknown]
  - Hyperglycaemia [Recovered/Resolved]
  - Blood cholesterol increased [Unknown]
  - Hypertriglyceridaemia [Unknown]
  - Lipids increased [Unknown]
